FAERS Safety Report 17751869 (Version 1)
Quarter: 2020Q2

REPORT INFORMATION
  Report Type: Report from Study
  Country: None (occurrence: BR)
  Receive Date: 20200506
  Receipt Date: 20200506
  Transmission Date: 20200714
  Serious: Yes (Other)
  Sender: FDA-Public Use
  Company Number: BR-ABBVIE-20K-020-3392651-00

PATIENT
  Sex: Female
  Weight: 61.5 kg

DRUGS (1)
  1. HUMIRA [Suspect]
     Active Substance: ADALIMUMAB
     Indication: ANKYLOSING SPONDYLITIS
     Dosage: UNSPECIFIED DOSE
     Route: 058
     Dates: start: 20140416, end: 201912

REACTIONS (2)
  - Hypoaesthesia oral [Recovered/Resolved]
  - Skeletal injury [Recovered/Resolved]

NARRATIVE: CASE EVENT DATE: 2019
